FAERS Safety Report 8585107-X (Version None)
Quarter: 2012Q3

REPORT INFORMATION
  Report Type: 
  Country: None (occurrence: None)
  Receive Date: 20120810
  Receipt Date: 20120803
  Transmission Date: 20120928
  Serious: Yes (Death, Other)
  Sender: FDA-Public Use
  Company Number: JP-CELGENEUS-087-50794-12080946

PATIENT
  Sex: Female
  Weight: 39 kg

DRUGS (19)
  1. VIDAZA [Suspect]
     Dosage: 75 MILLIGRAM/SQ. METER
     Route: 041
     Dates: start: 20111004, end: 20111005
  2. MOTILIUM [Concomitant]
     Route: 065
     Dates: start: 20110826
  3. PROTECADIN [Concomitant]
     Route: 065
     Dates: start: 20110812, end: 20110930
  4. SULFAMETHOXAZOLE AND TRIMETHOPRIM [Concomitant]
     Route: 065
     Dates: start: 20110805
  5. LANSOPRAZOLE [Concomitant]
     Route: 065
     Dates: start: 20110930
  6. ARMODAFINIL [Concomitant]
     Route: 065
     Dates: start: 20110805, end: 20110929
  7. METHYCOOL [Concomitant]
     Route: 065
     Dates: start: 20110812, end: 20110930
  8. ISONIAZID [Concomitant]
     Route: 065
     Dates: start: 20110805
  9. S ADCHNON [Concomitant]
     Route: 065
     Dates: start: 20110812
  10. ALDACTONE [Concomitant]
     Route: 065
     Dates: start: 20110812
  11. ALLOPURINOL [Concomitant]
     Route: 065
     Dates: start: 20110805, end: 20110930
  12. NEUQUINON [Concomitant]
     Route: 065
     Dates: start: 20110805, end: 20110930
  13. ITRACONAZOLE [Concomitant]
     Route: 065
     Dates: start: 20110930
  14. DEPAS [Concomitant]
     Route: 065
     Dates: start: 20110812
  15. POLARAMINE [Concomitant]
     Route: 065
     Dates: start: 20110812
  16. LAC-B [Concomitant]
     Route: 065
     Dates: start: 20110805, end: 20110930
  17. MAGMITT [Concomitant]
     Route: 065
     Dates: start: 20110812, end: 20111030
  18. LASIX [Concomitant]
     Route: 065
     Dates: start: 20110812
  19. VIDAZA [Suspect]
     Indication: MYELODYSPLASTIC SYNDROME
     Dosage: 75 MILLIGRAM/SQ. METER
     Route: 041
     Dates: start: 20110804, end: 20110808

REACTIONS (3)
  - PYREXIA [None]
  - SEPSIS [None]
  - PNEUMONIA [None]
